FAERS Safety Report 14378942 (Version 2)
Quarter: 2018Q1

REPORT INFORMATION
  Report Type: Report from Study
  Country: None (occurrence: US)
  Receive Date: 20180112
  Receipt Date: 20180329
  Transmission Date: 20180509
  Serious: Yes (Other)
  Sender: FDA-Public Use
  Company Number: US-ABBVIE-18K-163-2211867-00

PATIENT
  Age: 37 Year
  Sex: Male
  Weight: 83.99 kg

DRUGS (2)
  1. HUMIRA [Suspect]
     Active Substance: ADALIMUMAB
     Route: 058
     Dates: start: 201712
  2. HUMIRA [Suspect]
     Active Substance: ADALIMUMAB
     Indication: PSORIASIS
     Route: 058
     Dates: start: 2014, end: 201708

REACTIONS (7)
  - Salivary gland calculus [Recovered/Resolved]
  - Swelling face [Recovered/Resolved]
  - Oropharyngeal discomfort [Recovered/Resolved]
  - Salivary duct obstruction [Recovered/Resolved]
  - Bacterial infection [Recovered/Resolved]
  - Salivary gland calculus [Recovered/Resolved]
  - Pain in jaw [Recovered/Resolved]

NARRATIVE: CASE EVENT DATE: 2016
